FAERS Safety Report 11254357 (Version 1)
Quarter: 2015Q3

REPORT INFORMATION
  Report Type: Spontaneous
  Country: US (occurrence: None)
  Receive Date: 20150708
  Receipt Date: 20150708
  Transmission Date: 20151125
  Serious: No
  Sender: FDA-Public Use
  Company Number: None

PATIENT
  Age: 68 Year
  Sex: Female
  Weight: 152 kg

DRUGS (5)
  1. SYNTHROID [Concomitant]
     Active Substance: LEVOTHYROXINE SODIUM
  2. NAPHCOON A EYE DROPS [Concomitant]
  3. LISINOPRIL. [Suspect]
     Active Substance: LISINOPRIL
     Indication: HYPERTENSION
     Dosage: 1 PILL DAILY
     Route: 048
     Dates: start: 20150624, end: 20150626
  4. CETIZIZINE HCI [Concomitant]
  5. NASACORT [Concomitant]
     Active Substance: TRIAMCINOLONE ACETONIDE

REACTIONS (4)
  - Urticaria [None]
  - Nausea [None]
  - Pyrexia [None]
  - Product quality issue [None]

NARRATIVE: CASE EVENT DATE: 20150624
